FAERS Safety Report 13491592 (Version 2)
Quarter: 2017Q2

REPORT INFORMATION
  Report Type: Spontaneous
  Country: US (occurrence: US)
  Receive Date: 20170427
  Receipt Date: 20170427
  Transmission Date: 20170830
  Serious: Yes (Other)
  Sender: FDA-Public Use
  Company Number: US-BRISTOL-MYERS SQUIBB COMPANY-BMS-2017-034666

PATIENT
  Sex: Male

DRUGS (1)
  1. NIVOLUMAB [Suspect]
     Active Substance: NIVOLUMAB
     Indication: HEAD AND NECK CANCER
     Dosage: 10 MG/KG, UNK
     Route: 042

REACTIONS (5)
  - Prescribed overdose [Unknown]
  - Malignant neoplasm progression [Unknown]
  - Bone lesion [Unknown]
  - Skin disorder [Unknown]
  - Psoriasis [Unknown]
